FAERS Safety Report 7356192-8 (Version None)
Quarter: 2011Q1

REPORT INFORMATION
  Report Type: 
  Country: None (occurrence: None)
  Receive Date: 20110316
  Receipt Date: 20110311
  Transmission Date: 20110831
  Serious: Yes (Hospitalization)
  Sender: FDA-Public Use
  Company Number: DE-PFIZER INC-2011055075

PATIENT
  Sex: Male
  Weight: 86.5 kg

DRUGS (2)
  1. IBANDRONIC ACID [Concomitant]
     Dosage: 4 MG, EVERY 4 WEEKS
     Route: 042
     Dates: start: 20100301
  2. SUTENT [Suspect]
     Indication: RENAL CELL CARCINOMA
     Dosage: 37.5 MG, 1X/DAY
     Route: 048
     Dates: start: 20100406

REACTIONS (1)
  - OSTEONECROSIS OF JAW [None]
